FAERS Safety Report 5997306-1 (Version None)
Quarter: 2008Q4

REPORT INFORMATION
  Report Type: 
  Country: None (occurrence: None)
  Receive Date: 20081212
  Receipt Date: 20081110
  Transmission Date: 20090506
  Serious: No
  Sender: FDA-Public Use
  Company Number: US-ABBOTT-08P-163-0486865-00

PATIENT
  Sex: Female
  Weight: 68.554 kg

DRUGS (10)
  1. HUMIRA [Suspect]
     Indication: PSORIASIS
     Route: 058
     Dates: start: 20081021
  2. HUMIRA [Suspect]
     Indication: ARTHRITIS
  3. HYDROCODONE BITARTRATE [Concomitant]
     Indication: PAIN
     Route: 048
  4. HYDROCODONE BITARTRATE [Concomitant]
     Indication: FIBROMYALGIA
  5. HYDROCODONE BITARTRATE [Concomitant]
     Indication: NERVE INJURY
  6. CYCLOBENZAPRINE HCL [Concomitant]
     Indication: NERVE INJURY
     Route: 048
  7. CYCLOBENZAPRINE HCL [Concomitant]
     Indication: NERVE COMPRESSION
  8. TRAMADOL HCL [Concomitant]
     Indication: PAIN
     Dosage: 50MG, 3 IN 1 DAY AS NEEDED
     Route: 048
  9. PREGABALIN [Concomitant]
     Indication: NERVE INJURY
     Route: 048
  10. PREGABALIN [Concomitant]
     Indication: FIBROMYALGIA

REACTIONS (1)
  - INJECTION SITE EXTRAVASATION [None]
